FAERS Safety Report 8187798-4 (Version None)
Quarter: 2012Q1

REPORT INFORMATION
  Report Type: 
  Country: None (occurrence: None)
  Receive Date: 20120306
  Receipt Date: 20120222
  Transmission Date: 20120608
  Serious: Yes (Life-Threatening, Hospitalization)
  Sender: FDA-Public Use
  Company Number: US-ROCHE-789378

PATIENT
  Sex: Female
  Weight: 74.4 kg

DRUGS (27)
  1. VEMURAFENIB [Suspect]
     Indication: THYROID CANCER
     Dosage: LAST DOSE PRIOR TO SAE 07 JULY 2011.
     Route: 048
     Dates: start: 20110630, end: 20110707
  2. VEMURAFENIB [Suspect]
     Dosage: DOSE MODIFIED DUE TO AN ADVERSE EVENT AND THEN INTERRUPTED ON 22 JUL 2011 (REASON NOT SPECIFIED)
     Route: 048
     Dates: start: 20110714, end: 20110722
  3. VEMURAFENIB [Suspect]
     Route: 048
     Dates: start: 20110827, end: 20110918
  4. VEMURAFENIB [Suspect]
     Route: 048
     Dates: start: 20110920, end: 20110922
  5. VEMURAFENIB [Suspect]
     Route: 048
     Dates: start: 20111021, end: 20111023
  6. MULTI-VITAMIN [Concomitant]
     Indication: PROPHYLAXIS
     Route: 048
     Dates: start: 20080425
  7. IBUPROFEN TABLETS [Concomitant]
  8. NORVASC [Concomitant]
     Indication: ESSENTIAL HYPERTENSION
     Route: 048
     Dates: start: 20080501, end: 20110714
  9. ATIVAN [Concomitant]
     Indication: INSOMNIA
     Route: 048
     Dates: start: 20080425, end: 20110922
  10. VEMURAFENIB [Suspect]
     Route: 048
     Dates: start: 20110929, end: 20111013
  11. VEMURAFENIB [Suspect]
     Route: 048
     Dates: start: 20111014, end: 20111020
  12. BIFIDOBACTERIUM [Concomitant]
     Indication: PROPHYLAXIS
     Dosage: REPORT AS ALIGN OR
     Route: 048
     Dates: start: 20090604, end: 20111218
  13. CODEINE SUL TAB [Concomitant]
     Indication: DIARRHOEA
     Dosage: TAKEN FOR AE:DIARRHOEA
     Route: 048
  14. VEMURAFENIB [Suspect]
     Dosage: DOSE MODIFIED DUE TO AE, THEN INTERRUPTED AGAIN (REASON NOT SPECIFIED)
     Route: 048
     Dates: start: 20110728, end: 20110810
  15. VEMURAFENIB [Suspect]
     Route: 048
     Dates: start: 20111221, end: 20120101
  16. CICLESONIDE [Concomitant]
  17. TRAMADOL HCL [Concomitant]
  18. SYNTHROID [Concomitant]
     Indication: THYROIDECTOMY
     Route: 048
     Dates: start: 20100909
  19. VEMURAFENIB [Suspect]
     Route: 048
  20. CITRACAL + D [Concomitant]
     Indication: PROPHYLAXIS
     Route: 048
     Dates: start: 20110623, end: 20111020
  21. CHOLECALCIFEROL [Concomitant]
  22. PROBIOTIC SUPPLEMENT NOS [Concomitant]
     Indication: PROPHYLAXIS
     Dates: start: 20111201
  23. VEMURAFENIB [Suspect]
     Route: 048
     Dates: start: 20111024, end: 20111112
  24. VEMURAFENIB [Suspect]
     Route: 048
     Dates: start: 20111117, end: 20111219
  25. ASPIRIN [Concomitant]
     Indication: PROPHYLAXIS
     Route: 048
  26. NADOLOL [Concomitant]
     Indication: ESSENTIAL HYPERTENSION
     Route: 048
  27. VEMURAFENIB [Suspect]
     Route: 048
     Dates: start: 20110819, end: 20110826

REACTIONS (7)
  - FATIGUE [None]
  - ALANINE AMINOTRANSFERASE INCREASED [None]
  - BLOOD URIC ACID INCREASED [None]
  - RASH ERYTHEMATOUS [None]
  - ASPARTATE AMINOTRANSFERASE INCREASED [None]
  - HYPOTENSION [None]
  - RASH MACULAR [None]
